FAERS Safety Report 13085004 (Version 15)
Quarter: 2019Q2

REPORT INFORMATION
  Report Type: Spontaneous
  Country: US (occurrence: US)
  Receive Date: 20170104
  Receipt Date: 20190624
  Transmission Date: 20190711
  Serious: Yes (Life-Threatening, Hospitalization, Other)
  Sender: FDA-Public Use
  Company Number: US-PFIZER INC-2016601369

PATIENT
  Age: 53 Year
  Sex: Female
  Weight: 62 kg

DRUGS (15)
  1. LYRICA [Suspect]
     Active Substance: PREGABALIN
     Indication: NEUROPATHY PERIPHERAL
     Dosage: 150 MG, 2X/DAY
     Route: 048
  2. NORVASC [Concomitant]
     Active Substance: AMLODIPINE BESYLATE
     Indication: BLOOD PRESSURE ABNORMAL
     Dosage: 10 MG, 1X/DAY
  3. OXYBUTYNIN. [Concomitant]
     Active Substance: OXYBUTYNIN CHLORIDE
     Indication: BLADDER DISORDER
     Dosage: 10 MG, 2X/DAY
  4. AMITREX [Concomitant]
     Active Substance: AMISULPRIDE
     Indication: MIGRAINE
     Dosage: 200 MG, UNK [ONE ON THE ONSET OF MIGRAINE AND ONE TWO HOURS LATER IF CONTINUES]
  5. LOMOTIL [Concomitant]
     Active Substance: ATROPINE SULFATE\DIPHENOXYLATE HYDROCHLORIDE
     Dosage: 2.5 MG, AS NEEDED (ONE FOUR TIMES A DAY PRN)
  6. BYSTOLIC [Concomitant]
     Active Substance: NEBIVOLOL HYDROCHLORIDE
     Indication: BLOOD PRESSURE ABNORMAL
     Dosage: 10 MG, 1X/DAY
  7. LYRICA [Suspect]
     Active Substance: PREGABALIN
     Indication: DIABETIC NEUROPATHY
     Dosage: 150 MG, 3X/DAY
     Route: 048
  8. NORVASC [Concomitant]
     Active Substance: AMLODIPINE BESYLATE
     Indication: HYPERTENSION
     Dosage: 10 MG, 2X/DAY
  9. FLONASE [Concomitant]
     Active Substance: FLUTICASONE PROPIONATE
     Indication: HYPERSENSITIVITY
     Dosage: UNK
     Route: 045
  10. TOPAMAX [Concomitant]
     Active Substance: TOPIRAMATE
     Indication: MIGRAINE
     Dosage: 50 MG, 2X/DAY
  11. LYRICA [Suspect]
     Active Substance: PREGABALIN
     Indication: FIBROMYALGIA
     Dosage: 75 MG, 2X/DAY
     Route: 048
  12. BYSTOLIC [Concomitant]
     Active Substance: NEBIVOLOL HYDROCHLORIDE
     Indication: HYPERTENSION
  13. PROMETHAZINE [Concomitant]
     Active Substance: PROMETHAZINE\PROMETHAZINE HYDROCHLORIDE
     Dosage: 25 MG, AS NEEDED (ONE EVERY 6 HOURS PRN)
  14. ELAVIL [ALLOPURINOL] [Concomitant]
     Active Substance: ALLOPURINOL
     Indication: INSOMNIA
     Dosage: 100 MG, 1X/DAY[FOUR OF THEM AT NIGHT]
  15. VIBERZI [Concomitant]
     Active Substance: ELUXADOLINE
     Indication: IRRITABLE BOWEL SYNDROME
     Dosage: 150 MG, 2X/DAY

REACTIONS (19)
  - Emotional disorder [Unknown]
  - Malaise [Unknown]
  - Infection [Unknown]
  - Breast cancer [Unknown]
  - Lower limb fracture [Unknown]
  - Bone disorder [Unknown]
  - Crohn^s disease [Unknown]
  - Intentional product use issue [Unknown]
  - Ankle fracture [Unknown]
  - Feeling hot [Unknown]
  - Gait disturbance [Unknown]
  - Fall [Unknown]
  - Headache [Unknown]
  - Hypoaesthesia [Unknown]
  - Migraine [Unknown]
  - Pain in extremity [Unknown]
  - Feeling abnormal [Unknown]
  - Mental disorder [Unknown]
  - Intervertebral disc protrusion [Unknown]

NARRATIVE: CASE EVENT DATE: 2016
